FAERS Safety Report 13540190 (Version 7)
Quarter: 2017Q3

REPORT INFORMATION
  Report Type: Spontaneous
  Country: DE (occurrence: DE)
  Receive Date: 20170512
  Receipt Date: 20170926
  Transmission Date: 20171127
  Serious: Yes (Life-Threatening, Hospitalization, Disabling)
  Sender: FDA-Public Use
  Company Number: DE-ROCHE-1933924

PATIENT
  Age: 73 Year
  Sex: Male

DRUGS (10)
  1. RAMIPRIL. [Concomitant]
     Active Substance: RAMIPRIL
     Dosage: 0-0-1
     Route: 065
  2. TAMSULOSIN [Concomitant]
     Active Substance: TAMSULOSIN
     Indication: PRODUCT USED FOR UNKNOWN INDICATION
     Dosage: 1-0-0
     Route: 065
  3. RAMIPRIL HCT [Concomitant]
     Active Substance: HYDROCHLOROTHIAZIDE\RAMIPRIL
     Indication: PRODUCT USED FOR UNKNOWN INDICATION
     Dosage: 5/12.5, 1-0-0
     Route: 065
  4. SIMVASTATIN. [Concomitant]
     Active Substance: SIMVASTATIN
     Indication: PRODUCT USED FOR UNKNOWN INDICATION
     Dosage: 0-0-1
     Route: 065
  5. SYMBICORT [Concomitant]
     Active Substance: BUDESONIDE\FORMOTEROL FUMARATE DIHYDRATE
     Indication: PRODUCT USED FOR UNKNOWN INDICATION
     Dosage: 320/9MCG, TURBOHALER, DOSAGE 1-0-1
     Route: 065
  6. RAMIPRIL. [Concomitant]
     Active Substance: RAMIPRIL
     Indication: HYPERTENSION
     Dosage: 1-0-1
     Route: 065
  7. NITRO SPRAY (NO OTHER INFORMATION IS AVAILABLE) [Concomitant]
     Indication: PRODUCT USED FOR UNKNOWN INDICATION
  8. ASA [Concomitant]
     Active Substance: ASPIRIN
  9. SALBUTAMOL [Concomitant]
     Active Substance: ALBUTEROL
     Indication: PRODUCT USED FOR UNKNOWN INDICATION
  10. ACTILYSE [Suspect]
     Active Substance: ALTEPLASE
     Indication: LACUNAR STROKE
     Route: 042
     Dates: start: 20170429, end: 20170429

REACTIONS (2)
  - Angioedema [Recovered/Resolved]
  - Product quality issue [Unknown]

NARRATIVE: CASE EVENT DATE: 20170429
